FAERS Safety Report 17207956 (Version 2)
Quarter: 2020Q1

REPORT INFORMATION
  Report Type: Spontaneous
  Country: MX (occurrence: MX)
  Receive Date: 20191227
  Receipt Date: 20200117
  Transmission Date: 20200409
  Serious: Yes (Other)
  Sender: FDA-Public Use
  Company Number: MX-TEVA-2019-MX-1159164

PATIENT
  Age: 45 Year
  Sex: Female

DRUGS (2)
  1. LIDOCAINE. [Suspect]
     Active Substance: LIDOCAINE
     Indication: LOCAL ANAESTHESIA
     Route: 065
  2. MEPIVACAINE [Suspect]
     Active Substance: MEPIVACAINE HYDROCHLORIDE
     Indication: LOCAL ANAESTHESIA
     Route: 065

REACTIONS (2)
  - Type I hypersensitivity [Recovered/Resolved]
  - Therapeutic product cross-reactivity [Unknown]
